FAERS Safety Report 8780968 (Version 2)
Quarter: 2012Q4

REPORT INFORMATION
  Report Type: Report from Study
  Country: NL (occurrence: NL)
  Receive Date: 20120913
  Receipt Date: 20120928
  Transmission Date: 20130627
  Serious: Yes (Hospitalization)
  Sender: FDA-Public Use
  Company Number: NL-SANOFI-AVENTIS-2012SA063186

PATIENT
  Age: 59 Year
  Sex: Male
  Weight: 83 kg

DRUGS (7)
  1. AFLIBERCEPT [Suspect]
     Route: 065
     Dates: start: 20120706, end: 20120706
  2. AFLIBERCEPT [Suspect]
     Route: 065
     Dates: start: 20120806, end: 20120806
  3. IRINOTECAN [Suspect]
     Route: 065
     Dates: start: 20120806, end: 20120806
  4. 5 FU [Suspect]
     Route: 065
     Dates: start: 20120806, end: 20120806
  5. LEUCOVORIN [Suspect]
     Route: 065
     Dates: start: 20120806, end: 20120806
  6. NOVOMIX [Concomitant]
     Route: 058
  7. MIRTAZAPINE [Concomitant]
     Route: 048

REACTIONS (2)
  - Malnutrition [Recovered/Resolved with Sequelae]
  - Hypophagia [None]
